FAERS Safety Report 5801970-7 (Version None)
Quarter: 2008Q3

REPORT INFORMATION
  Report Type: 
  Country: None (occurrence: None)
  Receive Date: 20080702
  Receipt Date: 20080618
  Transmission Date: 20090109
  Serious: Yes (Hospitalization, Other)
  Sender: FDA-Public Use
  Company Number: PERC20080046

PATIENT
  Age: 52 Year
  Sex: Male
  Weight: 77.3 kg

DRUGS (11)
  1. PERCOCET [Suspect]
     Dosage: Q6H PRN
  2. TEMODAR [Suspect]
     Indication: GLIOBLASTOMA MULTIFORME
     Dosage: 145 MG, DAILY, PER ORAL
     Route: 048
     Dates: start: 20080317, end: 20080428
  3. PREVACID [Concomitant]
  4. ZOCOR [Concomitant]
  5. KEPPRA [Concomitant]
  6. DILANTIN [Concomitant]
  7. COREG [Concomitant]
  8. SYNTHROID [Concomitant]
  9. HYDROXYZINE [Concomitant]
  10. CLOTRIMAZOLE TROCHE [Concomitant]
  11. ZETIA [Concomitant]

REACTIONS (5)
  - ABDOMINAL PAIN [None]
  - RASH MACULAR [None]
  - RASH PRURITIC [None]
  - RENAL INFARCT [None]
  - SPLENIC INFARCTION [None]
